FAERS Safety Report 4609125-9 (Version None)
Quarter: 2005Q1

REPORT INFORMATION
  Report Type: 
  Country: None (occurrence: None)
  Receive Date: 20050311
  Receipt Date: 20050224
  Transmission Date: 20050727
  Serious: Yes (Hospitalization, Other)
  Sender: FDA-Public Use
  Company Number: US-2005-002746

PATIENT
  Sex: Male

DRUGS (1)
  1. BETAFERON 250 UG, 500 UG AND COPAXONE (BETAFERON (SH Y 579E)) INJECTIO [Suspect]
     Indication: RELAPSING-REMITTING MULTIPLE SCLEROSIS
     Dosage: 250 UG, EVERY 2D, SUBCUTANEOUS
     Route: 058
     Dates: end: 20050201

REACTIONS (5)
  - DEPRESSION [None]
  - MULTIPLE SCLEROSIS RELAPSE [None]
  - PANIC ATTACK [None]
  - SUICIDAL IDEATION [None]
  - VIRAL INFECTION [None]
